FAERS Safety Report 17740313 (Version 1)
Quarter: 2020Q2

REPORT INFORMATION
  Report Type: Spontaneous
  Country: US (occurrence: US)
  Receive Date: 20200504
  Receipt Date: 20200504
  Transmission Date: 20200714
  Serious: No
  Sender: FDA-Public Use
  Company Number: US-PFIZER INC-2019365657

PATIENT
  Age: 65 Year
  Sex: Female

DRUGS (2)
  1. IBRANCE [Suspect]
     Active Substance: PALBOCICLIB
     Indication: BREAST CANCER METASTATIC
     Dosage: 100 MG, UNK
  2. IBRANCE [Suspect]
     Active Substance: PALBOCICLIB
     Indication: BONE CANCER METASTATIC

REACTIONS (7)
  - Product dose omission [Unknown]
  - Back pain [Unknown]
  - Paraesthesia [Unknown]
  - Alopecia [Unknown]
  - Cystitis [Unknown]
  - Impatience [Unknown]
  - Arthralgia [Unknown]
